FAERS Safety Report 8452757 (Version 2)
Quarter: 2013Q2

REPORT INFORMATION
  Report Type: Spontaneous
  Country: US (occurrence: None)
  Receive Date: 20120210
  Receipt Date: 20130206
  Transmission Date: 20140414
  Serious: Yes (Hospitalization)
  Sender: FDA-Public Use
  Company Number: DAV-AE-MTX-11-045

PATIENT
  Age: 63 Year
  Sex: Male
  Weight: 74 kg

DRUGS (14)
  1. METHOTREXATE [Suspect]
     Indication: RHEUMATOID ARTHRITIS
     Dosage: 1 IN 1 WK, ORAL
     Route: 048
     Dates: start: 20110225
  2. LEVOTHYROXINE SODIUM 175MCG [Concomitant]
  3. SIMVASTATIN [Concomitant]
  4. OMEPRAZOLE 50MG [Concomitant]
  5. CELECOXIB 400MG [Concomitant]
  6. METOPROLOL SUCCINATE [Concomitant]
  7. HUMIRA (ADALIMUMAB) OPEN LABEL [Suspect]
     Dosage: 40 MG, 1 IN 2 WK
     Route: 058
     Dates: start: 20110225
  8. HYDROCHLORTHIAZIDE [Concomitant]
  9. ACETYLSALICYLIC ACID [Concomitant]
  10. PYRIDOXINE HYDROCHLORIDE [Concomitant]
  11. GABAPENTIN [Concomitant]
  12. VICODIN [Concomitant]
  13. GLYCERYL TRINITRATE [Concomitant]
  14. FUROSEMIDE [Concomitant]

REACTIONS (1)
  - Anaemia [None]
